FAERS Safety Report 24670504 (Version 2)
Quarter: 2024Q4

REPORT INFORMATION
  Report Type: Spontaneous
  Country: IT (occurrence: IT)
  Receive Date: 20241127
  Receipt Date: 20241203
  Transmission Date: 20250115
  Serious: Yes (Other)
  Sender: PFIZER
  Company Number: IT-MLMSERVICE-20241113-PI256526-00175-1

PATIENT
  Age: 77 Year
  Sex: Female

DRUGS (1)
  1. HEPARIN SODIUM [Suspect]
     Active Substance: HEPARIN SODIUM
     Indication: Anticoagulant therapy
     Dosage: UNK
     Route: 042

REACTIONS (4)
  - Haemorrhagic infarction [Recovering/Resolving]
  - Shock haemorrhagic [Recovering/Resolving]
  - Haemodynamic instability [Recovering/Resolving]
  - Haematoma [Recovering/Resolving]
